FAERS Safety Report 9043502 (Version 1)
Quarter: 2013Q1

REPORT INFORMATION
  Report Type: Report from Study
  Country: US (occurrence: US)
  Receive Date: 20130129
  Receipt Date: 20130129
  Transmission Date: 20140127
  Serious: No
  Sender: FDA-Public Use
  Company Number: US-ABBOTT-12P-163-0911502-00

PATIENT
  Age: 43 None
  Sex: Female
  Weight: 72.64 kg

DRUGS (4)
  1. HUMIRA 40 MG/0.8 ML PEN [Suspect]
     Indication: CROHN^S DISEASE
     Dates: start: 201201
  2. KLONOPIN [Concomitant]
     Indication: ANXIETY DISORDER
  3. PERCOCET [Concomitant]
     Indication: PAIN
  4. AUGMENTIN [Concomitant]
     Indication: FISTULA

REACTIONS (3)
  - Cardiac flutter [Not Recovered/Not Resolved]
  - Fistula [Not Recovered/Not Resolved]
  - Blood cholesterol increased [Unknown]
